FAERS Safety Report 9315250 (Version 1)
Quarter: 2013Q2

REPORT INFORMATION
  Report Type: Report from Study
  Country: GB (occurrence: GB)
  Receive Date: 20130529
  Receipt Date: 20130529
  Transmission Date: 20140414
  Serious: Yes (Death)
  Sender: FDA-Public Use
  Company Number: GB-ROCHE-1228770

PATIENT
  Sex: Male
  Weight: 65 kg

DRUGS (2)
  1. RITUXIMAB [Suspect]
     Indication: RHEUMATOID ARTHRITIS
     Dosage: LAST DOSE PRIOR TO SAE: 31/JUL/2012
     Route: 065
     Dates: start: 20100420
  2. METHOTREXATE [Concomitant]

REACTIONS (1)
  - Death [Fatal]
